FAERS Safety Report 5937965-2 (Version None)
Quarter: 2008Q4

REPORT INFORMATION
  Report Type: 
  Country: None (occurrence: None)
  Receive Date: 20081031
  Receipt Date: 20081029
  Transmission Date: 20090506
  Serious: No
  Sender: FDA-Public Use
  Company Number: US-ASTRAZENECA-2008UW24205

PATIENT
  Age: 49 Year
  Sex: Female
  Weight: 99.8 kg

DRUGS (3)
  1. ATACAND [Suspect]
     Indication: CARDIAC FAILURE CONGESTIVE
     Route: 048
     Dates: start: 20081001
  2. COREG [Concomitant]
  3. DIGOXIN [Concomitant]

REACTIONS (1)
  - PRURITUS [None]
